FAERS Safety Report 9518406 (Version 2)
Quarter: 2014Q1

REPORT INFORMATION
  Report Type: Report from Study
  Country: DE (occurrence: DE)
  Receive Date: 20130912
  Receipt Date: 20140320
  Transmission Date: 20141002
  Serious: Yes (Hospitalization)
  Sender: FDA-Public Use
  Company Number: DE-CELGENEUS-062-21880-13090029

PATIENT
  Age: 70 Year
  Sex: Male
  Weight: 105 kg

DRUGS (11)
  1. REVLIMID [Suspect]
     Indication: PLASMA CELL MYELOMA
     Dosage: 10 MILLIGRAM
     Route: 048
     Dates: start: 20130124, end: 20130829
  2. REVLIMID [Suspect]
     Dosage: 10 MILLIGRAM
     Route: 048
     Dates: start: 20130829, end: 20140227
  3. BORTEZOMIB [Suspect]
     Indication: PLASMA CELL MYELOMA
     Route: 058
     Dates: start: 20120417, end: 20120621
  4. ACETYLSALICYLIC ACID [Concomitant]
     Indication: THROMBOSIS PROPHYLAXIS
     Route: 048
     Dates: start: 20130326
  5. ACETYLSALICYLIC ACID [Concomitant]
     Indication: HYPERTENSION
  6. AMLODIPINE [Concomitant]
     Indication: HYPERTENSION
     Dosage: 5 MILLIGRAM
     Route: 048
  7. ENALAPRIL [Concomitant]
     Indication: HYPERTENSION
     Dosage: 20
     Route: 065
  8. METOPROLOL [Concomitant]
     Indication: HYPERTENSION
     Route: 065
  9. GLIBENCLAMIDE [Concomitant]
     Indication: DIABETES MELLITUS
     Dosage: 7 MILLIGRAM
     Route: 065
  10. METFORMIN [Concomitant]
     Indication: DIABETES MELLITUS
     Dosage: 1700 MILLIGRAM
     Route: 065
  11. SIMVASTATIN [Concomitant]
     Indication: HYPERCHOLESTEROLAEMIA
     Dosage: 30 MILLIGRAM
     Route: 065

REACTIONS (1)
  - Gangrene [Recovered/Resolved with Sequelae]
